FAERS Safety Report 23958957 (Version 6)
Quarter: 2025Q3

REPORT INFORMATION
  Report Type: Report from Study
  Country: US (occurrence: US)
  Receive Date: 20240611
  Receipt Date: 20250916
  Transmission Date: 20251020
  Serious: Yes (Hospitalization, Other)
  Sender: TAKEDA
  Company Number: US-TAKEDA-2022TUS065304

PATIENT
  Age: 72 Year
  Sex: Male
  Weight: 86 kg

DRUGS (14)
  1. HUMAN IMMUNOGLOBULIN G [Suspect]
     Active Substance: HUMAN IMMUNOGLOBULIN G
     Indication: Immunodeficiency common variable
     Dosage: 10 GRAM, Q2WEEKS
  2. HUMAN IMMUNOGLOBULIN G [Suspect]
     Active Substance: HUMAN IMMUNOGLOBULIN G
     Dosage: 20 GRAM, Q2WEEKS
  3. MOTEGRITY [Suspect]
     Active Substance: PRUCALOPRIDE SUCCINATE
     Indication: Product used for unknown indication
  4. CYCLOBENZAPRINE [Suspect]
     Active Substance: CYCLOBENZAPRINE
     Indication: Product used for unknown indication
  5. DIPHENHYDRAMINE [Concomitant]
     Active Substance: DIPHENHYDRAMINE
  6. EPINEPHRINE [Concomitant]
     Active Substance: EPINEPHRINE
  7. PREDNISONE [Concomitant]
     Active Substance: PREDNISONE
  8. ACETAMINOPHEN [Concomitant]
     Active Substance: ACETAMINOPHEN
  9. SYNTHROID [Concomitant]
     Active Substance: LEVOTHYROXINE SODIUM
  10. OMEPRAZOLE [Concomitant]
     Active Substance: OMEPRAZOLE
  11. Lmx [Concomitant]
  12. LUBIPROSTONE [Concomitant]
     Active Substance: LUBIPROSTONE
  13. TAMSULOSIN HYDROCHLORIDE [Concomitant]
     Active Substance: TAMSULOSIN HYDROCHLORIDE
  14. DIPHENHYDRAMINE HYDROCHLORIDE [Concomitant]
     Active Substance: DIPHENHYDRAMINE HYDROCHLORIDE

REACTIONS (15)
  - Nasopharyngitis [Unknown]
  - Haematochezia [Unknown]
  - Loss of consciousness [Unknown]
  - Norovirus infection [Unknown]
  - Escherichia infection [Unknown]
  - Dehydration [Unknown]
  - Infusion site discharge [Unknown]
  - Inappropriate schedule of product administration [Unknown]
  - Meniscus injury [Unknown]
  - Gastrointestinal infection [Unknown]
  - Weight decreased [Unknown]
  - Oropharyngeal pain [Unknown]
  - Muscle spasms [Unknown]
  - Rash [Unknown]
  - Diarrhoea [Unknown]

NARRATIVE: CASE EVENT DATE: 20240430
